FAERS Safety Report 19603027 (Version 1)
Quarter: 2021Q3

REPORT INFORMATION
  Report Type: Report from Study
  Country: CA (occurrence: CA)
  Receive Date: 20210724
  Receipt Date: 20210724
  Transmission Date: 20211014
  Serious: Yes (Other)
  Sender: FDA-Public Use
  Company Number: CA-UCBSA-2021034268

PATIENT
  Age: 35 Year
  Sex: Male

DRUGS (2)
  1. CARBAMAZEPINE. [Concomitant]
     Active Substance: CARBAMAZEPINE
     Indication: PRODUCT USED FOR UNKNOWN INDICATION
     Dosage: UNK
  2. LACOSAMIDE. [Suspect]
     Active Substance: LACOSAMIDE
     Indication: PARTIAL SEIZURES
     Dosage: 200 MILLIGRAM, 2X/DAY (BID)
     Route: 048

REACTIONS (1)
  - Generalised tonic-clonic seizure [Not Recovered/Not Resolved]

NARRATIVE: CASE EVENT DATE: 20210711
